FAERS Safety Report 9363158 (Version 1)
Quarter: 2013Q2

REPORT INFORMATION
  Report Type: Spontaneous
  Country: US (occurrence: US)
  Receive Date: 20130624
  Receipt Date: 20130624
  Transmission Date: 20140414
  Serious: Yes (Death)
  Sender: FDA-Public Use
  Company Number: US-AMGEN-USASP2013043711

PATIENT
  Age: 83 Year
  Sex: Female

DRUGS (19)
  1. ENBREL [Suspect]
     Indication: PRODUCT USED FOR UNKNOWN INDICATION
     Dosage: 50 MG, QWK
     Route: 058
  2. CARVEDILOL [Concomitant]
     Dosage: 12.5 MG, UNK
  3. MECLIZINE                          /00072801/ [Concomitant]
     Dosage: 25 MG, UNK
  4. NEXIUM                             /01479302/ [Concomitant]
     Dosage: 20 MG, UNK
  5. FUROSEMIDE [Concomitant]
     Dosage: 20 MG, UNK
  6. LIPITOR [Concomitant]
     Dosage: 10 MG, UNK
  7. IMDUR [Concomitant]
     Dosage: 30 MG,ER, UNK
  8. ARAVA [Concomitant]
     Dosage: 10 MG, UNK
  9. LEVOTHYROXIN [Concomitant]
     Dosage: 100 MUG, UNK
  10. KLOR-CON M10 [Concomitant]
     Dosage: 10 MEQ, ER, UNK
  11. ASPIRIN [Concomitant]
     Dosage: 81 MG, UNK
  12. CENTRUM SILVER                     /02363801/ [Concomitant]
     Dosage: UNK
  13. COQ10                              /00517201/ [Concomitant]
     Dosage: 100 MG, UNK
  14. OSCAL 500 [Concomitant]
     Dosage: UNK
  15. D3 [Concomitant]
     Dosage: 200 UNK, UNK
  16. VITAMIN D3 [Concomitant]
     Dosage: 10000 UNIT, UNK
  17. ONE A DAY ESSENTIAL [Concomitant]
     Dosage: UNK
  18. FERGON [Concomitant]
     Dosage: 240 MG, UNK
  19. BIOTIN [Concomitant]
     Dosage: 5000 UNK, UNK

REACTIONS (1)
  - Death [Fatal]
